FAERS Safety Report 20824563 (Version 1)
Quarter: 2022Q2

REPORT INFORMATION
  Report Type: Spontaneous
  Country: US (occurrence: US)
  Receive Date: 20220513
  Receipt Date: 20220513
  Transmission Date: 20220721
  Serious: Yes (Life-Threatening, Other)
  Sender: FDA-Public Use
  Company Number: US-NOVARTISPH-NVSC2022US109213

PATIENT
  Sex: Male
  Weight: 85.275 kg

DRUGS (4)
  1. METOPROLOL [Suspect]
     Active Substance: METOPROLOL
     Indication: Atrial fibrillation
     Dosage: 12.5 MG, QD
     Route: 065
  2. PLAVIX [Concomitant]
     Active Substance: CLOPIDOGREL BISULFATE
     Indication: Product used for unknown indication
     Dosage: UNK
     Route: 065
  3. ASPIRIN [Concomitant]
     Active Substance: ASPIRIN
     Indication: Product used for unknown indication
     Dosage: UNK
     Route: 065
  4. ATACAND [Concomitant]
     Active Substance: CANDESARTAN CILEXETIL
     Indication: Product used for unknown indication
     Dosage: UNK
     Route: 065

REACTIONS (10)
  - Angina pectoris [Recovering/Resolving]
  - Chest discomfort [Unknown]
  - Chest pain [Unknown]
  - Coronary artery occlusion [Recovering/Resolving]
  - Mitral valve incompetence [Unknown]
  - Prostate cancer [Unknown]
  - Blood testosterone decreased [Unknown]
  - Toothache [Unknown]
  - Heart rate decreased [Unknown]
  - Hypotension [Unknown]
